FAERS Safety Report 23745729 (Version 4)
Quarter: 2024Q4

REPORT INFORMATION
  Report Type: Spontaneous
  Country: JP (occurrence: JP)
  Receive Date: 20240416
  Receipt Date: 20241202
  Transmission Date: 20250115
  Serious: Yes (Hospitalization, Other)
  Sender: BRISTOL-MYERS SQUIBB COMPANY
  Company Number: JP-BRISTOL-MYERS SQUIBB COMPANY-2024-055677

PATIENT
  Age: 80 Year
  Sex: Male

DRUGS (6)
  1. YERVOY [Suspect]
     Active Substance: IPILIMUMAB
     Indication: Non-small cell lung cancer
     Route: 041
     Dates: start: 20220413, end: 20220413
  2. YERVOY [Suspect]
     Active Substance: IPILIMUMAB
     Route: 041
     Dates: start: 20220517, end: 20220517
  3. YERVOY [Suspect]
     Active Substance: IPILIMUMAB
     Route: 041
     Dates: start: 20220607, end: 20220607
  4. OPDIVO [Suspect]
     Active Substance: NIVOLUMAB
     Indication: Non-small cell lung cancer
     Route: 041
     Dates: start: 20220413, end: 20220413
  5. OPDIVO [Suspect]
     Active Substance: NIVOLUMAB
     Route: 041
     Dates: start: 20220517, end: 20220517
  6. OPDIVO [Suspect]
     Active Substance: NIVOLUMAB
     Route: 041
     Dates: start: 20220607, end: 20220607

REACTIONS (14)
  - Non-small cell lung cancer [Unknown]
  - Decreased appetite [Unknown]
  - Diarrhoea [Unknown]
  - Bacillus test positive [Unknown]
  - Enterococcus test positive [Unknown]
  - Altered state of consciousness [Unknown]
  - Interstitial lung disease [Unknown]
  - Flank pain [Unknown]
  - Fall [Unknown]
  - Sepsis [Unknown]
  - Cytokine release syndrome [Unknown]
  - Immune-mediated adverse reaction [Unknown]
  - Pyrexia [Unknown]
  - Gastrointestinal tract adenoma [Unknown]

NARRATIVE: CASE EVENT DATE: 20220601
